FAERS Safety Report 6792682-4 (Version None)
Quarter: 2010Q2

REPORT INFORMATION
  Report Type: 
  Country: None (occurrence: None)
  Receive Date: 20100624
  Receipt Date: 20080908
  Transmission Date: 20101027
  Serious: No
  Sender: FDA-Public Use
  Company Number: US-PFIZER INC-2008075641

PATIENT
  Age: 75 Year
  Sex: Female

DRUGS (6)
  1. XALATAN [Suspect]
     Dates: start: 20080501
  2. ACTONEL [Suspect]
  3. MONTELUKAST SODIUM [Concomitant]
  4. ADVAIR DISKUS 100/50 [Concomitant]
  5. NASONEX [Concomitant]
  6. LIPITOR [Concomitant]

REACTIONS (1)
  - COUGH [None]
